FAERS Safety Report 19508110 (Version 2)
Quarter: 2021Q3

REPORT INFORMATION
  Report Type: Spontaneous
  Country: JP (occurrence: JP)
  Receive Date: 20210708
  Receipt Date: 20210806
  Transmission Date: 20211014
  Serious: Yes (Other)
  Sender: FDA-Public Use
  Company Number: JP-PFIZER INC-2021793163

PATIENT
  Age: 77 Year
  Sex: Male

DRUGS (2)
  1. SOLU?CORTEF [Suspect]
     Active Substance: HYDROCORTISONE SODIUM SUCCINATE
     Dosage: UNK
     Dates: start: 202002, end: 202002
  2. SOLU?MEDROL [Suspect]
     Active Substance: METHYLPREDNISOLONE SODIUM SUCCINATE
     Dosage: UNK
     Dates: start: 202002, end: 202002

REACTIONS (1)
  - Substance-induced psychotic disorder [Unknown]

NARRATIVE: CASE EVENT DATE: 2020
